FAERS Safety Report 6677350-1 (Version None)
Quarter: 2010Q2

REPORT INFORMATION
  Report Type: 
  Country: None (occurrence: None)
  Receive Date: 20100409
  Receipt Date: 20100409
  Transmission Date: 20101027
  Serious: No
  Sender: FDA-Public Use
  Company Number: None

PATIENT
  Sex: Female

DRUGS (2)
  1. ZOCOR [Suspect]
  2. SIMVASTATIN [Suspect]

REACTIONS (2)
  - MUSCLE DISORDER [None]
  - WEIGHT DECREASED [None]
